FAERS Safety Report 5849770-6 (Version None)
Quarter: 2008Q3

REPORT INFORMATION
  Report Type: 
  Country: None (occurrence: None)
  Receive Date: 20080819
  Receipt Date: 20080813
  Transmission Date: 20090109
  Serious: Yes (Disabling)
  Sender: FDA-Public Use
  Company Number: US-MERCK-0806USA09026

PATIENT
  Age: 81 Year
  Sex: Female

DRUGS (6)
  1. COSOPT [Suspect]
     Indication: GLAUCOMA
     Route: 047
     Dates: start: 20080623, end: 20080624
  2. COSOPT [Suspect]
     Indication: MACULAR DEGENERATION
     Route: 047
     Dates: start: 20080623, end: 20080624
  3. XALATAN [Concomitant]
     Route: 065
  4. AZOPT [Concomitant]
     Route: 065
     Dates: end: 20080623
  5. LEVOTHROID [Concomitant]
     Route: 065
  6. MINERALS (UNSPECIFIED) AND VITAMINS (UNSPECIFIED) [Concomitant]
     Route: 065

REACTIONS (1)
  - TACHYCARDIA [None]
